FAERS Safety Report 17510254 (Version 1)
Quarter: 2020Q1

REPORT INFORMATION
  Report Type: Spontaneous
  Country: US (occurrence: US)
  Receive Date: 20200306
  Receipt Date: 20200306
  Transmission Date: 20200409
  Serious: No
  Sender: FDA-Public Use
  Company Number: US-PFIZER INC-2020099937

PATIENT
  Age: 63 Year
  Sex: Male
  Weight: 74.84 kg

DRUGS (2)
  1. SILDENAFIL CITRATE. [Suspect]
     Active Substance: SILDENAFIL CITRATE
     Indication: ERECTILE DYSFUNCTION
     Dosage: 100 MG, TOOK HALF TABLET AND THEN TOOK THE OTHER HALF
     Dates: start: 20200301, end: 20200301
  2. LISINOPRIL [LISINOPRIL DIHYDRATE] [Concomitant]
     Indication: BLOOD PRESSURE MEASUREMENT
     Dosage: UNK

REACTIONS (4)
  - Drug ineffective [Not Recovered/Not Resolved]
  - Poor quality product administered [Unknown]
  - Product shape issue [Unknown]
  - Product colour issue [Unknown]

NARRATIVE: CASE EVENT DATE: 20200301
